FAERS Safety Report 23289471 (Version 2)
Quarter: 2024Q3

REPORT INFORMATION
  Report Type: Spontaneous
  Country: FR (occurrence: FR)
  Receive Date: 20231212
  Receipt Date: 20240816
  Transmission Date: 20241017
  Serious: Yes (Other)
  Sender: AMERICAN REGENT
  Company Number: FR-AMERICAN REGENT INC-2023002867

PATIENT
  Age: 37 Year
  Sex: Female

DRUGS (1)
  1. FERINJECT [Suspect]
     Active Substance: FERRIC CARBOXYMALTOSE
     Indication: Anaemia
     Dosage: 1000 MILLIGRAM, DILUTED IN 75ML OF 0.9 PERCENT SODIUM CHLORIDE (NACL)
     Dates: start: 20231116, end: 20231116

REACTIONS (2)
  - Pigmentation disorder [Recovering/Resolving]
  - Infusion site oedema [Recovered/Resolved]

NARRATIVE: CASE EVENT DATE: 20231116
